FAERS Safety Report 18011295 (Version 2)
Quarter: 2021Q2

REPORT INFORMATION
  Report Type: Spontaneous
  Country: CA (occurrence: CA)
  Receive Date: 20200712
  Receipt Date: 20210628
  Transmission Date: 20210717
  Serious: Yes (Life-Threatening, Hospitalization)
  Sender: FDA-Public Use
  Company Number: CA-TEVA-2020-CA-1798123

PATIENT
  Age: 64 Year
  Sex: Female
  Weight: 41 kg

DRUGS (2)
  1. CYRAMZA [Suspect]
     Active Substance: RAMUCIRUMAB
     Dosage: SOLUTION INTRAVENOUS
     Route: 042
  2. PACLITAXEL INJECTION USP [Suspect]
     Active Substance: PACLITAXEL
     Indication: GASTRIC CANCER
     Dosage: 110 MG, 1 EVERY 1 WEEK, SOLUTION INTRAVENOUS
     Route: 042

REACTIONS (4)
  - Vomiting [Unknown]
  - Hyperthermia [Unknown]
  - Chills [Unknown]
  - Pneumonia [Unknown]
